FAERS Safety Report 10204457 (Version 1)
Quarter: 2014Q2

REPORT INFORMATION
  Report Type: Spontaneous
  Country: US (occurrence: None)
  Receive Date: 20140527
  Receipt Date: 20140527
  Transmission Date: 20141212
  Serious: Yes (Hospitalization)
  Sender: FDA-Public Use
  Company Number: None

PATIENT
  Age: 56 Year
  Sex: Male

DRUGS (1)
  1. PREDNISONE [Suspect]
     Indication: POLYMYOSITIS
     Route: 048
     Dates: start: 20120416, end: 20120519

REACTIONS (3)
  - Blood creatine phosphokinase increased [None]
  - No therapeutic response [None]
  - Asthenia [None]
